FAERS Safety Report 14563139 (Version 1)
Quarter: 2018Q1

REPORT INFORMATION
  Report Type: Spontaneous
  Country: US (occurrence: US)
  Receive Date: 20180221
  Receipt Date: 20180221
  Transmission Date: 20180509
  Serious: Yes (Hospitalization)
  Sender: FDA-Public Use
  Company Number: None

PATIENT
  Age: 71 Year
  Sex: Male
  Weight: 129.36 kg

DRUGS (2)
  1. WARFARIN [Suspect]
     Active Substance: WARFARIN
     Indication: ATRIAL FIBRILLATION
     Dates: start: 20150428
  2. ASPIRIN. [Suspect]
     Active Substance: ASPIRIN
     Indication: CORONARY ARTERY DISEASE
     Route: 048
     Dates: start: 20140602, end: 20180105

REACTIONS (6)
  - Gastric haemorrhage [None]
  - Haematocrit decreased [None]
  - Haemoglobin decreased [None]
  - Duodenitis [None]
  - Duodenal ulcer [None]
  - Gastritis [None]

NARRATIVE: CASE EVENT DATE: 20180105
